FAERS Safety Report 8475369-1 (Version None)
Quarter: 2012Q2

REPORT INFORMATION
  Report Type: 
  Country: None (occurrence: None)
  Receive Date: 20120628
  Receipt Date: 20120614
  Transmission Date: 20120825
  Serious: Yes (Other)
  Sender: FDA-Public Use
  Company Number: CH-ELI_LILLY_AND_COMPANY-CH201206005090

PATIENT
  Age: 45 Year
  Sex: Female

DRUGS (3)
  1. FLUOXETINE HYDROCHLORIDE [Suspect]
     Dosage: 1 DF, QD
  2. TEGRETOL [Concomitant]
     Indication: EPILEPSY
     Dosage: 1200 MG, QD
  3. DEPAKENE [Concomitant]
     Dosage: 500 MG, QD
     Dates: end: 20120417

REACTIONS (1)
  - MATERNAL EXPOSURE DURING PREGNANCY [None]
